FAERS Safety Report 11147296 (Version 3)
Quarter: 2015Q3

REPORT INFORMATION
  Report Type: Report from Study
  Country: US (occurrence: US)
  Receive Date: 20150528
  Receipt Date: 20150723
  Transmission Date: 20151125
  Serious: Yes (Hospitalization, Other)
  Sender: FDA-Public Use
  Company Number: US-GILEAD-2015-0148405

PATIENT
  Age: 73 Year
  Sex: Male

DRUGS (2)
  1. IDELALISIB [Suspect]
     Active Substance: IDELALISIB
     Dosage: 150 MG, BID
     Route: 048
     Dates: start: 20150420
  2. IDELALISIB [Suspect]
     Active Substance: IDELALISIB
     Indication: CHRONIC LYMPHOCYTIC LEUKAEMIA
     Dosage: 150 MG, BID
     Route: 048
     Dates: start: 20141017

REACTIONS (13)
  - Night sweats [Unknown]
  - White blood cell count increased [Unknown]
  - Neoplasm [Unknown]
  - Pneumonia [Unknown]
  - Back pain [Unknown]
  - Diarrhoea [Unknown]
  - Asthenia [Unknown]
  - Pulmonary thrombosis [Unknown]
  - Pain [Unknown]
  - Pneumonia [Recovered/Resolved]
  - Weight increased [Unknown]
  - Chest pain [Unknown]
  - Neutrophil count decreased [Unknown]

NARRATIVE: CASE EVENT DATE: 201410
